FAERS Safety Report 22244808 (Version 1)
Quarter: 2023Q2

REPORT INFORMATION
  Report Type: Spontaneous
  Country: US (occurrence: US)
  Receive Date: 20230424
  Receipt Date: 20230424
  Transmission Date: 20230721
  Serious: Yes (Other)
  Sender: FDA-Public Use
  Company Number: US-BRISTOL-MYERS SQUIBB COMPANY-2022-121653

PATIENT
  Age: 75 Year
  Sex: Female

DRUGS (2)
  1. LUSPATERCEPT [Suspect]
     Active Substance: LUSPATERCEPT
     Indication: Primary myelofibrosis
  2. LUSPATERCEPT [Suspect]
     Active Substance: LUSPATERCEPT

REACTIONS (2)
  - Deep vein thrombosis [Unknown]
  - Off label use [Unknown]
